FAERS Safety Report 14895567 (Version 7)
Quarter: 2019Q3

REPORT INFORMATION
  Report Type: Report from Study
  Country: FR (occurrence: FR)
  Receive Date: 20180515
  Receipt Date: 20190828
  Transmission Date: 20191004
  Serious: Yes (Death, Life-Threatening, Hospitalization, Other)
  Sender: FDA-Public Use
  Company Number: PHHY2018FR004826

PATIENT
  Age: 63 Year
  Sex: Male
  Weight: 83 kg

DRUGS (7)
  1. 5 FU [Concomitant]
     Active Substance: FLUOROURACIL
     Indication: PRODUCT USED FOR UNKNOWN INDICATION
     Dosage: UNK
     Route: 065
     Dates: start: 20141023, end: 20170411
  2. DETICENE [Concomitant]
     Active Substance: DACARBAZINE
     Indication: PRODUCT USED FOR UNKNOWN INDICATION
     Route: 065
     Dates: start: 20141023, end: 20170420
  3. OXALIPLATIN. [Concomitant]
     Active Substance: OXALIPLATIN
     Indication: PRODUCT USED FOR UNKNOWN INDICATION
     Route: 065
     Dates: start: 20170502, end: 20170814
  4. AFINITOR [Suspect]
     Active Substance: EVEROLIMUS
     Indication: NEUROENDOCRINE TUMOUR
     Dosage: 10 MG, QD
     Route: 048
     Dates: start: 20180226, end: 20180304
  5. SUTENT [Suspect]
     Active Substance: SUNITINIB MALATE
     Indication: PANCREATIC NEUROENDOCRINE TUMOUR
     Route: 065
     Dates: start: 20170822, end: 20180220
  6. 5 FU [Concomitant]
     Active Substance: FLUOROURACIL
     Dosage: UNK
     Route: 065
     Dates: start: 20170502, end: 20170725
  7. AFINITOR [Suspect]
     Active Substance: EVEROLIMUS
     Indication: PANCREATIC NEUROENDOCRINE TUMOUR

REACTIONS (17)
  - Hyperkalaemia [Fatal]
  - Tumour necrosis [Fatal]
  - Abdominal pain upper [Fatal]
  - Pyrexia [Fatal]
  - Pleural effusion [Fatal]
  - Pancreatic neuroendocrine tumour [Fatal]
  - Neoplasm progression [Fatal]
  - Tumour associated fever [Fatal]
  - Cell death [Fatal]
  - Jaundice cholestatic [Fatal]
  - General physical health deterioration [Fatal]
  - Acute kidney injury [Fatal]
  - Oedema peripheral [Fatal]
  - Hyperleukocytosis [Fatal]
  - Cholestasis [Fatal]
  - Abdominal pain [Fatal]
  - Chest pain [Fatal]

NARRATIVE: CASE EVENT DATE: 20180301
